FAERS Safety Report 7137611 (Version 2)
Quarter: 2012Q4

REPORT INFORMATION
  Report Type: 
  Country: US (occurrence: US)
  Receive Date: 20091002
  Receipt Date: 20120907
  Transmission Date: 20130627
  Serious: Yes (Hospitalization)
  Sender: FDA-Public Use
  Company Number: US-ASTRAZENECA-2008UW20628

PATIENT
  Age: 73 Year
  Sex: Female
  Weight: 77.1 kg

DRUGS (7)
  1. ARIMIDEX [Suspect]
     Indication: BREAST CANCER FEMALE
     Route: 048
     Dates: start: 200605
  2. PULMICORT FLEXHALER [Suspect]
     Dosage: 180 MCG, TWO PUFFS PER DAY
     Route: 055
  3. PULMICORT FLEXHALER [Suspect]
     Dosage: 180 MCG, ONE PUFFA DAY
     Route: 055
  4. CRESTOR [Suspect]
     Route: 048
  5. FLUCONAZOLE [Suspect]
     Route: 065
  6. SYNTHROID [Suspect]
     Route: 065
  7. NASCOBAL [Concomitant]
     Route: 045

REACTIONS (11)
  - Hemiparesis [Unknown]
  - Cerebrovascular accident [Unknown]
  - Haemoglobin decreased [Unknown]
  - Dizziness [Unknown]
  - Alopecia [Unknown]
  - Barrett^s oesophagus [Unknown]
  - Nasopharyngitis [Unknown]
  - Tongue discolouration [Unknown]
  - Glucose tolerance impaired [Unknown]
  - Bladder disorder [Unknown]
  - Off label use [Unknown]
